FAERS Safety Report 7137112-8 (Version None)
Quarter: 2010Q4

REPORT INFORMATION
  Report Type: 
  Country: None (occurrence: None)
  Receive Date: 20101206
  Receipt Date: 20080327
  Transmission Date: 20110411
  Serious: Yes (Death)
  Sender: FDA-Public Use
  Company Number: US-ACTELION-A-US2006-16147

PATIENT

DRUGS (15)
  1. ILOPROST INHALATION SOLUTION 5UG US [Suspect]
     Indication: PULMONARY ARTERIAL HYPERTENSION
     Dosage: 5 UG, 6 X DAY
     Route: 055
     Dates: start: 20051222, end: 20070717
  2. MAGNESIUM GLUCONATE [Concomitant]
  3. CARDIAZEM [Concomitant]
  4. ASPIRIN [Concomitant]
  5. ZETIA [Concomitant]
  6. PRAVACHOL [Concomitant]
  7. ZAROXOLYN [Concomitant]
  8. COUMADIN [Concomitant]
  9. LEXAPRO [Concomitant]
  10. SOTALOL [Concomitant]
  11. ALTACE [Concomitant]
  12. TORSEMIDE [Concomitant]
  13. AMBIEN [Concomitant]
  14. SILDENAFIL [Concomitant]
  15. TRACLEER [Concomitant]
     Dates: start: 20070717, end: 20070910

REACTIONS (3)
  - CHEST PAIN [None]
  - DEATH [None]
  - MUSCLE SPASMS [None]
